FAERS Safety Report 12537375 (Version 1)
Quarter: 2016Q3

REPORT INFORMATION
  Report Type: Spontaneous
  Country: FR (occurrence: FR)
  Receive Date: 20160707
  Receipt Date: 20160707
  Transmission Date: 20161109
  Serious: Yes (Hospitalization)
  Sender: FDA-Public Use
  Company Number: FR-PFIZER INC-2016317309

PATIENT
  Age: 54 Year
  Sex: Male
  Weight: 80 kg

DRUGS (7)
  1. IFOSFAMIDE EG [Suspect]
     Active Substance: IFOSFAMIDE
     Indication: T-CELL LYMPHOMA
     Dosage: 9600 MG, CYCLIC
     Route: 041
     Dates: start: 20151230, end: 20151230
  2. UROMITEXAN [Concomitant]
     Active Substance: MESNA
     Dosage: UNK
     Route: 048
     Dates: start: 20151230, end: 20151231
  3. ZOPHREN /00955301/ [Concomitant]
     Active Substance: ONDANSETRON
     Indication: PREMEDICATION
     Dosage: UNK
     Route: 042
     Dates: start: 20160103, end: 20160109
  4. EMEND [Concomitant]
     Active Substance: APREPITANT
     Indication: PREMEDICATION
     Dosage: UNK
     Route: 042
     Dates: start: 20160103, end: 20160109
  5. CARBOPLATINE HOSPIRA [Suspect]
     Active Substance: CARBOPLATIN
     Indication: T-CELL LYMPHOMA
     Dosage: 500 MG, CYCLIC ON D2
     Route: 041
     Dates: start: 20151230, end: 20151230
  6. ETOPOSIDE TEVA [Suspect]
     Active Substance: ETOPOSIDE
     Indication: T-CELL LYMPHOMA
     Dosage: 190 MG, CYCLIC ON D1, D2 AND D3
     Route: 041
     Dates: start: 20151229, end: 20151231
  7. ZARZIO [Concomitant]
     Active Substance: FILGRASTIM
     Indication: PREMEDICATION
     Dosage: UNK
     Route: 042
     Dates: start: 20160103, end: 20160109

REACTIONS (4)
  - Staphylococcal infection [Recovered/Resolved]
  - Staphylococcal bacteraemia [Recovered/Resolved]
  - Neutropenia [Recovered/Resolved]
  - Thrombocytopenia [Recovered/Resolved]

NARRATIVE: CASE EVENT DATE: 201601
